FAERS Safety Report 15448985 (Version 1)
Quarter: 2018Q3

REPORT INFORMATION
  Report Type: Spontaneous
  Country: US (occurrence: US)
  Receive Date: 20180926
  Receipt Date: 20180926
  Transmission Date: 20181010
  Serious: Yes (Life-Threatening, Disabling)
  Sender: FDA-Public Use
  Company Number: None

PATIENT
  Age: 28 Year
  Sex: Female
  Weight: 67.5 kg

DRUGS (2)
  1. CLONAZEPAM. [Suspect]
     Active Substance: CLONAZEPAM
     Indication: ANXIETY
     Route: 048
     Dates: start: 20130101, end: 20180201
  2. AUGMENTIN [Concomitant]
     Active Substance: AMOXICILLIN\CLAVULANATE POTASSIUM

REACTIONS (9)
  - Suicidal ideation [None]
  - Depression [None]
  - Skin burning sensation [None]
  - Pain [None]
  - Impaired driving ability [None]
  - Disturbance in attention [None]
  - Impaired work ability [None]
  - Cystitis interstitial [None]
  - Insomnia [None]

NARRATIVE: CASE EVENT DATE: 20180201
